FAERS Safety Report 4401466-3 (Version None)
Quarter: 2004Q3

REPORT INFORMATION
  Report Type: 
  Country: None (occurrence: None)
  Receive Date: 20040907
  Receipt Date: 20040518
  Transmission Date: 20050211
  Serious: No
  Sender: FDA-Public Use
  Company Number: US-BRISTOL-MYERS SQUIBB COMPANY-12590055

PATIENT
  Age: 56 Year
  Sex: Female

DRUGS (7)
  1. WARFARIN SODIUM [Suspect]
     Indication: CEREBROVASCULAR ACCIDENT
     Dosage: THE DOSE WAS REDUCED TO 4 MG DAILY (LAST WEEK).
     Route: 048
     Dates: start: 20040401
  2. ATENOLOL [Concomitant]
  3. MAXZIDE [Concomitant]
  4. ASPIRIN [Concomitant]
  5. FOLTX [Concomitant]
  6. KLONOPIN [Concomitant]
  7. XANAX [Concomitant]

REACTIONS (2)
  - ABDOMINAL PAIN [None]
  - VAGINAL HAEMORRHAGE [None]
